FAERS Safety Report 18911404 (Version 1)
Quarter: 2021Q1

REPORT INFORMATION
  Report Type: Report from Study
  Country: US (occurrence: US)
  Receive Date: 20210218
  Receipt Date: 20210218
  Transmission Date: 20210420
  Serious: Yes (Hospitalization)
  Sender: FDA-Public Use
  Company Number: NVSC2021US032951

PATIENT
  Age: 45 Year
  Sex: Female

DRUGS (1)
  1. KESIMPTA [Suspect]
     Active Substance: OFATUMUMAB
     Indication: MULTIPLE SCLEROSIS
     Dosage: 20 MG, QW
     Route: 030
     Dates: start: 20210209

REACTIONS (5)
  - Diplegia [Unknown]
  - Chills [Unknown]
  - Headache [Unknown]
  - Cold sweat [Unknown]
  - Fall [Unknown]

NARRATIVE: CASE EVENT DATE: 20210209
